FAERS Safety Report 6983507-2 (Version None)
Quarter: 2010Q3

REPORT INFORMATION
  Report Type: 
  Country: None (occurrence: None)
  Receive Date: 20100914
  Receipt Date: 20080702
  Transmission Date: 20110219
  Serious: Yes (Life-Threatening)
  Sender: FDA-Public Use
  Company Number: US-WYE-H04825008

PATIENT
  Sex: Female
  Weight: 70.4 kg

DRUGS (17)
  1. TYGACIL [Suspect]
     Indication: STAPHYLOCOCCAL INFECTION
     Route: 042
     Dates: start: 20080522, end: 20080620
  2. NEURONTIN [Concomitant]
     Route: 048
  3. LOPID [Concomitant]
     Route: 048
  4. AVAPRO [Concomitant]
     Route: 048
  5. LEVOTHYROXINE [Concomitant]
     Indication: THYROID DISORDER
     Route: 048
  6. ALPRAZOLAM [Concomitant]
     Dosage: .5 MG EVERY 1 PRN
     Route: 048
  7. MECLOZINE [Concomitant]
     Route: 048
  8. METFORMIN HCL [Concomitant]
     Route: 048
  9. METHOCARBAMOL [Concomitant]
     Route: 048
  10. ZOFRAN [Concomitant]
     Route: 048
  11. AMBIEN [Concomitant]
     Route: 048
  12. COLACE [Concomitant]
     Route: 048
  13. DURAGESIC-100 [Concomitant]
     Dosage: UNKNOWN
     Route: 061
  14. MEGACE [Concomitant]
     Route: 048
  15. CLEOCIN [Concomitant]
     Route: 048
  16. DIFLUCAN [Concomitant]
     Route: 048
  17. LASIX [Concomitant]
     Dosage: 20 DAILY
     Route: 048

REACTIONS (1)
  - THROMBOCYTOPENIA [None]
